FAERS Safety Report 9607614 (Version 3)
Quarter: 2013Q4

REPORT INFORMATION
  Report Type: Spontaneous
  Country: JP (occurrence: JP)
  Receive Date: 20131009
  Receipt Date: 20131024
  Transmission Date: 20140711
  Serious: Yes (Hospitalization)
  Sender: FDA-Public Use
  Company Number: PHHY2013JP112179

PATIENT
  Age: 83 Year
  Sex: Male

DRUGS (3)
  1. RIVASTIGMIN [Suspect]
     Indication: DEMENTIA ALZHEIMER^S TYPE
     Dosage: UNK UKN, UNK
     Route: 062
     Dates: start: 201306
  2. RIVASTIGMIN [Suspect]
     Dosage: 13.5 MG, QD
     Route: 062
     Dates: start: 2013
  3. INSULIN [Concomitant]
     Dosage: UNK UKN, UNK

REACTIONS (3)
  - Haemoglobin decreased [Recovering/Resolving]
  - Gastrointestinal haemorrhage [Recovering/Resolving]
  - Faeces discoloured [Recovering/Resolving]
